FAERS Safety Report 12786506 (Version 1)
Quarter: 2016Q3

REPORT INFORMATION
  Report Type: Spontaneous
  Country: US (occurrence: US)
  Receive Date: 20160927
  Receipt Date: 20160927
  Transmission Date: 20161109
  Serious: No
  Sender: FDA-Public Use
  Company Number: PHEH2016US024632

PATIENT
  Age: 61 Year
  Sex: Male
  Weight: 89.81 kg

DRUGS (2)
  1. VOTRIENT [Suspect]
     Active Substance: PAZOPANIB HYDROCHLORIDE
     Indication: RENAL CELL CARCINOMA
     Dosage: 800 MG, QD
     Route: 048
     Dates: start: 20160406
  2. VOTRIENT [Suspect]
     Active Substance: PAZOPANIB HYDROCHLORIDE
     Indication: LUNG NEOPLASM MALIGNANT

REACTIONS (2)
  - Diarrhoea [Unknown]
  - Blood pressure increased [Unknown]
